FAERS Safety Report 16001610 (Version 1)
Quarter: 2019Q1

REPORT INFORMATION
  Report Type: Spontaneous
  Country: US (occurrence: US)
  Receive Date: 20190225
  Receipt Date: 20190225
  Transmission Date: 20190418
  Serious: No
  Sender: FDA-Public Use
  Company Number: US-ALLERGAN-1815214US

PATIENT
  Sex: Female

DRUGS (3)
  1. NORCO [Suspect]
     Active Substance: ACETAMINOPHEN\HYDROCODONE BITARTRATE
     Indication: PAIN
     Dosage: 325 MG, QD
     Route: 048
     Dates: start: 201802
  2. NORCO [Suspect]
     Active Substance: ACETAMINOPHEN\HYDROCODONE BITARTRATE
     Dosage: 325 UNK, UNK
     Route: 048
     Dates: end: 201712
  3. MECLOFENAMATE SODIUM. [Concomitant]
     Active Substance: MECLOFENAMATE SODIUM
     Indication: ARTHRITIS

REACTIONS (4)
  - Laziness [Unknown]
  - Mobility decreased [Unknown]
  - Product dose omission [Unknown]
  - Syncope [Unknown]
